FAERS Safety Report 21440486 (Version 1)
Quarter: 2022Q4

REPORT INFORMATION
  Report Type: Spontaneous
  Country: US (occurrence: US)
  Receive Date: 20221011
  Receipt Date: 20221011
  Transmission Date: 20230113
  Serious: Yes (Hospitalization)
  Sender: FDA-Public Use
  Company Number: US-AMNEAL PHARMACEUTICALS-2022-AMRX-01757

PATIENT
  Sex: Male
  Weight: 61.5 kg

DRUGS (1)
  1. BACLOFEN [Suspect]
     Active Substance: BACLOFEN
     Indication: Muscle spasticity
     Dosage: 326.1 MCG/DAY
     Route: 037

REACTIONS (2)
  - Bladder disorder [Unknown]
  - Therapeutic product effect variable [Unknown]
